FAERS Safety Report 24698796 (Version 4)
Quarter: 2025Q1

REPORT INFORMATION
  Report Type: Spontaneous
  Country: JP (occurrence: JP)
  Receive Date: 20241205
  Receipt Date: 20250305
  Transmission Date: 20250409
  Serious: Yes (Life-Threatening, Other)
  Sender: BRISTOL-MYERS SQUIBB COMPANY
  Company Number: JP-ONO-2024JP024424

PATIENT
  Sex: Female

DRUGS (1)
  1. OPDIVO [Suspect]
     Active Substance: NIVOLUMAB
     Indication: Non-small cell lung cancer
     Route: 041

REACTIONS (8)
  - Cardiac arrest [Unknown]
  - Bradycardia [Unknown]
  - Malaise [Unknown]
  - Immune-mediated adrenal insufficiency [Unknown]
  - Immune-mediated myocarditis [Unknown]
  - Immune-mediated hypophysitis [Unknown]
  - Pyrexia [Unknown]
  - Thyroid disorder [Unknown]
